FAERS Safety Report 5880971-7 (Version None)
Quarter: 2008Q3

REPORT INFORMATION
  Report Type: 
  Country: None (occurrence: None)
  Receive Date: 20080912
  Receipt Date: 20080610
  Transmission Date: 20090109
  Serious: No
  Sender: FDA-Public Use
  Company Number: US-ABBOTT-08P-163-0457524-00

PATIENT
  Sex: Male
  Weight: 90.8 kg

DRUGS (9)
  1. HUMIRA [Suspect]
     Indication: PSORIASIS
     Route: 058
     Dates: start: 20080401
  2. HUMIRA [Suspect]
     Route: 058
     Dates: start: 20080513
  3. METOPROLOL SUCCINATE [Concomitant]
     Indication: CARDIAC DISORDER
     Route: 048
     Dates: start: 20010101
  4. METOPROLOL SUCCINATE [Concomitant]
     Indication: BLOOD PRESSURE
  5. HYTIN [Concomitant]
     Indication: DRUG USE FOR UNKNOWN INDICATION
  6. ALOPURINAL [Concomitant]
     Indication: DRUG USE FOR UNKNOWN INDICATION
  7. ACETYLSALICYLIC ACID SRT [Concomitant]
     Indication: DRUG USE FOR UNKNOWN INDICATION
  8. TACLONEX 0.0005% [Concomitant]
     Indication: PSORIASIS
     Route: 061
  9. ESCITALOPRAM OXALATE [Concomitant]
     Indication: DEPRESSION
     Dosage: 20 MG WHEN HE REMEMBERS IT
     Route: 048

REACTIONS (4)
  - DRUG INEFFECTIVE [None]
  - INJECTION SITE PAIN [None]
  - PSORIASIS [None]
  - TREATMENT NONCOMPLIANCE [None]
